FAERS Safety Report 23942639 (Version 1)
Quarter: 2024Q2

REPORT INFORMATION
  Report Type: Spontaneous
  Country: US (occurrence: None)
  Receive Date: 20240605
  Receipt Date: 20240605
  Transmission Date: 20240716
  Serious: No
  Sender: FDA-Public Use
  Company Number: None

PATIENT

DRUGS (2)
  1. OMNIPAQUE [Suspect]
     Active Substance: IOHEXOL
  2. OMNIPAQUE [Suspect]
     Active Substance: IOHEXOL
     Route: 048

REACTIONS (5)
  - Incorrect route of product administration [None]
  - Product label confusion [None]
  - Product packaging confusion [None]
  - Product distribution issue [None]
  - Wrong technique in product usage process [None]
